FAERS Safety Report 4702087-5 (Version None)
Quarter: 2005Q2

REPORT INFORMATION
  Report Type: 
  Country: None (occurrence: None)
  Receive Date: 20050624
  Receipt Date: 20050323
  Transmission Date: 20051028
  Serious: No
  Sender: FDA-Public Use
  Company Number: 2005BI006586

PATIENT
  Age: 42 Year
  Sex: Female

DRUGS (2)
  1. NATALIZUMAB [Suspect]
     Indication: MULTIPLE SCLEROSIS
     Route: 065
  2. REBIF [Concomitant]

REACTIONS (8)
  - ARTHRALGIA [None]
  - BACK PAIN [None]
  - DRY SKIN [None]
  - HEADACHE [None]
  - HYPOAESTHESIA [None]
  - NASAL ULCER [None]
  - SKIN FISSURES [None]
  - STRESS [None]
